FAERS Safety Report 10548244 (Version 2)
Quarter: 2015Q1

REPORT INFORMATION
  Report Type: Spontaneous
  Country: FR (occurrence: FR)
  Receive Date: 20141028
  Receipt Date: 20150213
  Transmission Date: 20150720
  Serious: Yes (Hospitalization, Other)
  Sender: FDA-Public Use
  Company Number: FR-GLAXOSMITHKLINE-FR2014GSK009302

PATIENT
  Sex: Male

DRUGS (7)
  1. FLIXOTIDE DISKUS [Suspect]
     Active Substance: FLUTICASONE PROPIONATE
     Indication: PRODUCT USED FOR UNKNOWN INDICATION
     Dosage: 500 UNK, BID
     Route: 055
     Dates: end: 2013
  2. COLIMYCINE [Concomitant]
     Active Substance: COLISTIMETHATE SODIUM
     Route: 055
  3. BACTRIM [Concomitant]
     Active Substance: SULFAMETHOXAZOLE\TRIMETHOPRIM
  4. PULMICORT TURBUHALER [Suspect]
     Active Substance: BUDESONIDE
     Indication: PRODUCT USED FOR UNKNOWN INDICATION
     Dosage: UNK
     Route: 055
     Dates: end: 2013
  5. SPORANOX [Suspect]
     Active Substance: ITRACONAZOLE\SODIUM CHLORIDE
     Indication: PRODUCT USED FOR UNKNOWN INDICATION
     Dosage: 600 MG, QOD
     Route: 048
     Dates: start: 200810, end: 201304
  6. HYDROCORTISONE. [Suspect]
     Active Substance: HYDROCORTISONE
     Indication: PRODUCT USED FOR UNKNOWN INDICATION
     Dosage: 20 MG, QOD
     Route: 048
     Dates: start: 2012
  7. OLMETEC [Concomitant]
     Active Substance: OLMESARTAN MEDOXOMIL

REACTIONS (9)
  - Adrenal insufficiency [Unknown]
  - Amyotrophy [Not Recovered/Not Resolved]
  - Blood potassium abnormal [Unknown]
  - Weight decreased [Not Recovered/Not Resolved]
  - Blood cortisol abnormal [Unknown]
  - Blood corticotrophin abnormal [Unknown]
  - Cushingoid [Recovering/Resolving]
  - Cushing^s syndrome [Recovered/Resolved]
  - Ecchymosis [Unknown]

NARRATIVE: CASE EVENT DATE: 2012
